FAERS Safety Report 21562352 (Version 1)
Quarter: 2022Q4

REPORT INFORMATION
  Report Type: Spontaneous
  Country: US (occurrence: None)
  Receive Date: 20221104
  Receipt Date: 20221104
  Transmission Date: 20230113
  Serious: No
  Sender: FDA-Public Use
  Company Number: None

PATIENT
  Age: 56 Year
  Sex: Female

DRUGS (1)
  1. GLATIRAMER ACETATE [Suspect]
     Active Substance: GLATIRAMER ACETATE
     Indication: Benign endocrine neoplasm
     Dosage: FREQUENCY : DAILY;?
     Route: 048
     Dates: start: 20200624

REACTIONS (5)
  - Tremor [None]
  - Hot flush [None]
  - Feeling cold [None]
  - Sinusitis [None]
  - Injection related reaction [None]

NARRATIVE: CASE EVENT DATE: 20221024
